FAERS Safety Report 13550865 (Version 1)
Quarter: 2017Q2

REPORT INFORMATION
  Report Type: Report from Study
  Country: US (occurrence: US)
  Receive Date: 20170516
  Receipt Date: 20170516
  Transmission Date: 20170830
  Serious: Yes (Hospitalization)
  Sender: FDA-Public Use
  Company Number: US-THERATECHNOLOGIES, INC.-TH-2016-00112

PATIENT
  Age: 53 Year
  Sex: Male
  Weight: 126 kg

DRUGS (24)
  1. ASPIRIN. [Concomitant]
     Active Substance: ASPIRIN
     Indication: CARDIOVASCULAR EVENT PROPHYLAXIS
     Dosage: 81 MG MILLIGRAM(S), QD
     Route: 048
     Dates: start: 20111216
  2. LYSINE [Concomitant]
     Active Substance: LYSINE
     Indication: DEPRESSION
  3. LYRICA [Concomitant]
     Active Substance: PREGABALIN
     Indication: PAIN
     Dosage: 25 MG MILLIGRAM(S), BID
     Route: 048
     Dates: start: 20160725
  4. HYDROXYZINE [Concomitant]
     Active Substance: HYDROXYZINE HYDROCHLORIDE
     Indication: INSOMNIA
  5. PREDNISONE. [Concomitant]
     Active Substance: PREDNISONE
     Indication: RENAL TRANSPLANT
     Dosage: 5 MG MILLIGRAM(S), QD
     Route: 048
     Dates: start: 20131204
  6. ZOLOFT [Concomitant]
     Active Substance: SERTRALINE HYDROCHLORIDE
     Indication: DEPRESSION
     Dosage: 200 MG MILLIGRAM(S), QD
     Route: 048
     Dates: start: 201503
  7. SYNTHROID [Concomitant]
     Active Substance: LEVOTHYROXINE SODIUM
     Indication: HYPOTHYROIDISM
     Dosage: 200 ??G MICROGRAM(S), QD
     Route: 048
     Dates: start: 19990813
  8. EGRIFTA [Suspect]
     Active Substance: TESAMORELIN
     Dosage: 1 MG MILLIGRAM(S), DAILY DOSE
     Route: 058
     Dates: start: 20160303, end: 201605
  9. EGRIFTA [Suspect]
     Active Substance: TESAMORELIN
     Dosage: ALTERNATE 1 MG MILLIGRAM(S) AND 2 MG, DAILY DOSE
     Route: 058
     Dates: start: 201605
  10. BUPROPION. [Concomitant]
     Active Substance: BUPROPION
     Indication: DEPRESSION
     Dosage: 100 MG MILLIGRAM(S), BID
     Route: 048
     Dates: start: 20160826
  11. CELLCEPT [Concomitant]
     Active Substance: MYCOPHENOLATE MOFETIL\MYCOPHENOLATE MOFETIL HYDROCHLORIDE
     Indication: RENAL TRANSPLANT
     Dosage: 500 MG MILLIGRAM(S), BID
     Route: 048
     Dates: start: 20131204
  12. BACTRIM DS [Concomitant]
     Active Substance: SULFAMETHOXAZOLE\TRIMETHOPRIM
     Indication: PROPHYLAXIS
     Dosage: 1 DF DOSAGE FORM, QOD
     Route: 048
     Dates: start: 19990816
  13. ISENTRESS [Concomitant]
     Active Substance: RALTEGRAVIR POTASSIUM
     Indication: HIV INFECTION
     Dosage: 400 MG MILLIGRAM(S), BID
     Route: 048
     Dates: start: 20131204
  14. PRAVASTATIN. [Concomitant]
     Active Substance: PRAVASTATIN
     Indication: DYSLIPIDAEMIA
     Dosage: 80 MG MILLIGRAM(S), UNK
     Route: 048
     Dates: start: 20131204
  15. PRAVASTATIN. [Concomitant]
     Active Substance: PRAVASTATIN
     Indication: HYPERTRIGLYCERIDAEMIA
  16. DOCUSATE SODIUM. [Concomitant]
     Active Substance: DOCUSATE SODIUM
     Indication: CONSTIPATION
     Dosage: 100 MG MILLIGRAM(S), PRN
     Route: 048
     Dates: start: 20160613
  17. LEVOFLOXACIN. [Concomitant]
     Active Substance: LEVOFLOXACIN
     Indication: INFECTION
     Dosage: 150 MG MILLIGRAM(S), QOD
     Route: 048
     Dates: start: 20160816, end: 20160822
  18. HYDROXYZINE [Concomitant]
     Active Substance: HYDROXYZINE HYDROCHLORIDE
     Indication: ANXIETY
     Dosage: 25 MG MILLIGRAM(S), PRN
     Route: 048
     Dates: start: 20160809
  19. DESCOVY [Concomitant]
     Active Substance: EMTRICITABINE\TENOFOVIR ALAFENAMIDE FUMARATE
     Indication: HIV INFECTION
     Dosage: 1 DF DOSAGE FORM, QD
     Route: 048
     Dates: start: 20160623
  20. SUSTIVA [Concomitant]
     Active Substance: EFAVIRENZ
     Indication: HIV INFECTION
     Dosage: 5000 MG MILLIGRAM(S), QD
     Route: 048
     Dates: start: 20131204
  21. TRICOR [Concomitant]
     Active Substance: FENOFIBRATE
     Indication: DYSLIPIDAEMIA
     Dosage: 145 MG MILLIGRAM(S), QD
     Route: 048
     Dates: start: 20111218
  22. EGRIFTA [Suspect]
     Active Substance: TESAMORELIN
     Indication: LIPODYSTROPHY ACQUIRED
     Dosage: 2 MG MILLIGRAM(S), DAILY DOSE
     Route: 058
     Dates: start: 20150317, end: 20160128
  23. LYSINE [Concomitant]
     Active Substance: LYSINE
     Indication: ANXIETY
     Dosage: 500 MG MILLIGRAM(S), QD
     Route: 048
     Dates: start: 20131204
  24. PROGRAF [Concomitant]
     Active Substance: TACROLIMUS\TACROLIMUS ANHYDROUS
     Indication: RENAL TRANSPLANT
     Dosage: 2 DF DOSAGE FORM, BID
     Route: 048
     Dates: start: 20131204

REACTIONS (1)
  - Affective disorder [Recovered/Resolved]

NARRATIVE: CASE EVENT DATE: 20160623
